FAERS Safety Report 15613909 (Version 8)
Quarter: 2019Q4

REPORT INFORMATION
  Report Type: Report from Study
  Country: US (occurrence: US)
  Receive Date: 20181113
  Receipt Date: 20191021
  Transmission Date: 20200122
  Serious: Yes (Hospitalization, Other)
  Sender: FDA-Public Use
  Company Number: US-ACTELION-A-US2017-153734

PATIENT
  Age: 34 Year
  Sex: Female
  Weight: 68.03 kg

DRUGS (7)
  1. VELETRI [Suspect]
     Active Substance: EPOPROSTENOL
     Dosage: 8 NG/KG, PER MIN
     Route: 042
  2. HYDROCHLOROTHIAZIDE. [Concomitant]
     Active Substance: HYDROCHLOROTHIAZIDE
     Dosage: 25 MG, QD
  3. REVATIO [Concomitant]
     Active Substance: SILDENAFIL CITRATE
  4. IODINE. [Concomitant]
     Active Substance: IODINE
     Route: 061
  5. OPSUMIT [Suspect]
     Active Substance: MACITENTAN
     Indication: PULMONARY ARTERIAL HYPERTENSION
     Dosage: 10 MG, QD
     Route: 048
  6. VELETRI [Suspect]
     Active Substance: EPOPROSTENOL
     Indication: PULMONARY ARTERIAL HYPERTENSION
     Dosage: 18 NG/KG, PER MIN
     Route: 042
  7. VELETRI [Suspect]
     Active Substance: EPOPROSTENOL
     Dosage: 19 NG/KG, PER MIN
     Route: 042

REACTIONS (13)
  - Catheter site infection [Unknown]
  - Diarrhoea [Not Recovered/Not Resolved]
  - Catheter site pain [Unknown]
  - Neuropathy peripheral [Recovered/Resolved]
  - Nausea [Recovered/Resolved]
  - Headache [Not Recovered/Not Resolved]
  - Heart rate increased [Unknown]
  - Sinusitis [Unknown]
  - Skin discolouration [Unknown]
  - Hypersensitivity [Unknown]
  - Hospitalisation [Unknown]
  - Application site infection [Unknown]
  - Flushing [Unknown]

NARRATIVE: CASE EVENT DATE: 20170507
